FAERS Safety Report 9147417 (Version 1)
Quarter: 2013Q1

REPORT INFORMATION
  Report Type: Report from Study
  Country: BR (occurrence: BR)
  Receive Date: 20130307
  Receipt Date: 20130307
  Transmission Date: 20140127
  Serious: Yes (Other)
  Sender: FDA-Public Use
  Company Number: BR-ABBOTT-13P-020-1058335-00

PATIENT
  Sex: Female
  Weight: 46 kg

DRUGS (4)
  1. HUMIRA [Suspect]
     Indication: RHEUMATOID ARTHRITIS
     Route: 058
     Dates: start: 2010, end: 201101
  2. HUMIRA [Suspect]
     Route: 058
     Dates: start: 201202
  3. METFORMIN [Concomitant]
     Indication: DIABETES MELLITUS
     Dosage: 2 TABLETS PER DAY
     Route: 048
  4. NIFEDIPINE [Concomitant]
     Indication: BLOOD PRESSURE
     Dosage: 2 TABLETS PER DAY
     Route: 048

REACTIONS (2)
  - Wound [Recovered/Resolved]
  - Rheumatic disorder [Unknown]
